FAERS Safety Report 9305608 (Version 2)
Quarter: 2013Q2

REPORT INFORMATION
  Report Type: Report from Study
  Country: NL (occurrence: NL)
  Receive Date: 20130523
  Receipt Date: 20130523
  Transmission Date: 20140414
  Serious: Yes (Other)
  Sender: FDA-Public Use
  Company Number: NL-ABBOTT-11P-114-0870793-00

PATIENT
  Age: 69 Year
  Sex: Male
  Weight: 89 kg

DRUGS (5)
  1. LUCRIN DEPOT 11.25 MG [Suspect]
     Indication: PROSTATE CANCER
     Route: 058
     Dates: start: 20110727
  2. ACENCOUMAROL [Concomitant]
     Indication: ANTICOAGULANT THERAPY
     Dosage: ACCORDING TO SCHEDULE
     Route: 048
  3. DILTIAZEM [Concomitant]
     Indication: HYPERTENSION
     Dosage: MGA
     Route: 048
     Dates: start: 2009
  4. PERINDOPRIL [Concomitant]
     Indication: HYPERTENSION
     Route: 048
  5. SIMVASTATIN [Concomitant]
     Indication: HYPERCHOLESTEROLAEMIA
     Dosage: PCH FC
     Route: 048

REACTIONS (5)
  - Prostatic specific antigen increased [Unknown]
  - Prostate cancer metastatic [Not Recovered/Not Resolved]
  - Hot flush [Not Recovered/Not Resolved]
  - Hyperhidrosis [Not Recovered/Not Resolved]
  - Weight increased [Not Recovered/Not Resolved]
